FAERS Safety Report 6166865-0 (Version None)
Quarter: 2009Q2

REPORT INFORMATION
  Report Type: 
  Country: None (occurrence: None)
  Receive Date: 20090424
  Receipt Date: 20090417
  Transmission Date: 20091009
  Serious: Yes (Hospitalization)
  Sender: FDA-Public Use
  Company Number: A0780175A

PATIENT
  Age: 52 Year
  Sex: Male

DRUGS (3)
  1. AVANDIA [Suspect]
     Dosage: 4MG PER DAY
     Route: 065
     Dates: start: 20040701, end: 20070701
  2. ASPIRIN [Concomitant]
  3. PLAVIX [Concomitant]

REACTIONS (3)
  - ANGINA UNSTABLE [None]
  - CARDIAC DISORDER [None]
  - MYOCARDIAL INFARCTION [None]
